FAERS Safety Report 15878885 (Version 1)
Quarter: 2019Q1

REPORT INFORMATION
  Report Type: Spontaneous
  Country: US (occurrence: US)
  Receive Date: 20190102
  Receipt Date: 20190102
  Transmission Date: 20190417
  Serious: Yes (Hospitalization)
  Sender: FDA-Public Use
  Company Number: None

PATIENT
  Age: 78 Year
  Sex: Female

DRUGS (1)
  1. XELJANZ [Suspect]
     Active Substance: TOFACITINIB CITRATE
     Indication: RHEUMATOID ARTHRITIS
     Route: 048
     Dates: start: 20140424

REACTIONS (5)
  - Nephrolithiasis [None]
  - Urinary tract infection [None]
  - Acute kidney injury [None]
  - Therapy cessation [None]
  - Sepsis [None]

NARRATIVE: CASE EVENT DATE: 20181217
